FAERS Safety Report 5036632-X (Version None)
Quarter: 2006Q2

REPORT INFORMATION
  Report Type: 
  Country: None (occurrence: None)
  Receive Date: 20060601
  Receipt Date: 20060406
  Transmission Date: 20061013
  Serious: No
  Sender: FDA-Public Use
  Company Number: US200604001271

PATIENT
  Age: 47 Year
  Sex: Female
  Weight: 41.7 kg

DRUGS (6)
  1. CYMBALTA [Suspect]
     Indication: FIBROMYALGIA
     Dosage: 30 MG DAILY (1/D)
     Route: 065
     Dates: start: 20060405
  2. PROZAC [Suspect]
     Indication: FIBROMYALGIA
     Dates: start: 20000101, end: 20000101
  3. SOMA [Concomitant]
  4. LORTAB [Concomitant]
  5. VALIUM [Concomitant]
  6. ZYBAN [Concomitant]

REACTIONS (4)
  - GAIT DISTURBANCE [None]
  - MOOD ALTERED [None]
  - SOMNOLENCE [None]
  - YAWNING [None]
